FAERS Safety Report 7603578-X (Version None)
Quarter: 2011Q3

REPORT INFORMATION
  Report Type: 
  Country: None (occurrence: None)
  Receive Date: 20110711
  Receipt Date: 20110711
  Transmission Date: 20111222
  Serious: No
  Sender: FDA-Public Use
  Company Number: None

PATIENT
  Age: 56 Year
  Sex: Female
  Weight: 76.2043 kg

DRUGS (1)
  1. CYMBALTA [Suspect]
     Indication: RESTLESS LEGS SYNDROME
     Dosage: 30 MG 1 PER DAY PO
     Route: 048
     Dates: start: 20100101, end: 20110707

REACTIONS (7)
  - NAUSEA [None]
  - DIZZINESS [None]
  - INSOMNIA [None]
  - CRYING [None]
  - DRUG WITHDRAWAL SYNDROME [None]
  - MYALGIA [None]
  - FEELING ABNORMAL [None]
